FAERS Safety Report 15739623 (Version 1)
Quarter: 2020Q3

REPORT INFORMATION
  Report Type: Spontaneous
  Country: PL (occurrence: PL)
  Receive Date: 20181219
  Receipt Date: 20181219
  Transmission Date: 20201104
  Serious: Yes (Other)
  Sender: FDA-Public Use
  Company Number: PHHY2018PL187679

PATIENT
  Age: 61 Year
  Sex: Male

DRUGS (5)
  1. PASIREOTIDE. [Suspect]
     Active Substance: PASIREOTIDE
     Indication: PITUITARY TUMOUR BENIGN
     Dosage: (0.5 DAY)
     Route: 058
     Dates: start: 20160201
  2. KETOCONAZOLE. [Suspect]
     Active Substance: KETOCONAZOLE
     Indication: PRODUCT USED FOR UNKNOWN INDICATION
     Dosage: 600 MG, QD
     Route: 065
  3. ONDANSETRON [Concomitant]
     Active Substance: ONDANSETRON
     Indication: PROPHYLAXIS OF NAUSEA AND VOMITING
     Route: 065
  4. TEMOZOLOMIDE. [Suspect]
     Active Substance: TEMOZOLOMIDE
     Indication: PITUITARY TUMOUR BENIGN
     Dosage: 150?200MG/M2 ONCE DAILY IN THE MORNING FOR FIRST FIVE CONSECUTIVE DAYS OF A 28 DAY CYCLE
     Route: 065
     Dates: start: 20150424, end: 201512
  5. TRIMETHOPRIM SULFAMETHOXAZOLE [Concomitant]
     Active Substance: SULFAMETHOXAZOLE\TRIMETHOPRIM
     Indication: ANTIBIOTIC PROPHYLAXIS
     Route: 065

REACTIONS (4)
  - Diabetes mellitus [Unknown]
  - Nausea [Unknown]
  - Hepatic function abnormal [Unknown]
  - Deafness [Unknown]

NARRATIVE: CASE EVENT DATE: 2015
